FAERS Safety Report 16259232 (Version 2)
Quarter: 2019Q3

REPORT INFORMATION
  Report Type: Spontaneous
  Country: JP (occurrence: JP)
  Receive Date: 20190501
  Receipt Date: 20190802
  Transmission Date: 20191004
  Serious: Yes (Hospitalization)
  Sender: FDA-Public Use
  Company Number: JP-GLAXOSMITHKLINE-JP2019JPN061999

PATIENT
  Age: 48 Year
  Sex: Female

DRUGS (7)
  1. DEPAS (ETIZOLAM) [Concomitant]
     Active Substance: ETIZOLAM
     Dosage: 0.5 MG, PRN
     Route: 048
     Dates: start: 20190323
  2. LAMICTAL [Suspect]
     Active Substance: LAMOTRIGINE
     Dosage: 75 MG, 1D
     Route: 048
     Dates: start: 20190323, end: 20190405
  3. HALCION [Concomitant]
     Active Substance: TRIAZOLAM
     Dosage: UNK, 1D
     Route: 048
     Dates: start: 20170727
  4. LAMICTAL [Suspect]
     Active Substance: LAMOTRIGINE
     Indication: BIPOLAR DISORDER
     Dosage: 25 MG, BID
     Route: 048
     Dates: start: 20190314, end: 20190322
  5. ZYPREXA [Concomitant]
     Active Substance: OLANZAPINE
     Dosage: UNK, 1D
     Route: 048
     Dates: start: 20190314, end: 20190323
  6. DEPAS (ETIZOLAM) [Concomitant]
     Active Substance: ETIZOLAM
     Dosage: 0.5 MG, 1D
     Route: 048
     Dates: start: 20190314, end: 20190322
  7. DEPAS (ETIZOLAM) [Concomitant]
     Active Substance: ETIZOLAM
     Dosage: 0.75 MG, 1D
     Route: 048
     Dates: start: 20190323, end: 20190323

REACTIONS (7)
  - Oropharyngeal pain [Recovering/Resolving]
  - Product use issue [Unknown]
  - Pyrexia [Recovered/Resolved]
  - Overdose [Unknown]
  - Pharyngeal swelling [Recovering/Resolving]
  - Ocular hyperaemia [Recovered/Resolved]
  - Stomatitis [Recovering/Resolving]

NARRATIVE: CASE EVENT DATE: 20190314
